FAERS Safety Report 18634116 (Version 1)
Quarter: 2020Q4

REPORT INFORMATION
  Report Type: Report from Study
  Country: US (occurrence: US)
  Receive Date: 20201218
  Receipt Date: 20201218
  Transmission Date: 20210114
  Serious: No
  Sender: FDA-Public Use
  Company Number: US-REGENERON PHARMACEUTICALS, INC.-2020-17533

PATIENT

DRUGS (3)
  1. EYLEA [Suspect]
     Active Substance: AFLIBERCEPT
     Indication: CHOROIDAL NEOVASCULARISATION
     Dosage: 2.00 UNK, UNK
     Route: 031
     Dates: start: 20171027, end: 20171027
  2. EYLEA [Suspect]
     Active Substance: AFLIBERCEPT
     Indication: NEOVASCULAR AGE-RELATED MACULAR DEGENERATION
     Dosage: 2.00 UNK, UNK
     Route: 031
     Dates: start: 20170922, end: 20170922
  3. EYLEA [Suspect]
     Active Substance: AFLIBERCEPT
     Dosage: 2.00 UNK, UNK
     Route: 031
     Dates: start: 20180207, end: 20180207

REACTIONS (2)
  - Unevaluable event [Recovered/Resolved]
  - Drug ineffective [Unknown]

NARRATIVE: CASE EVENT DATE: 20170922
